FAERS Safety Report 4872748-6 (Version None)
Quarter: 2006Q1

REPORT INFORMATION
  Report Type: 
  Country: None (occurrence: None)
  Receive Date: 20060103
  Receipt Date: 20051222
  Transmission Date: 20060701
  Serious: Yes (Death)
  Sender: FDA-Public Use
  Company Number: JP200512000202

PATIENT
  Age: 76 Year
  Sex: Female
  Weight: 53 kg

DRUGS (11)
  1. GEMZAR [Suspect]
     Indication: PANCREATIC CARCINOMA STAGE IV
     Dosage: SEE IMAGE
     Route: 042
     Dates: start: 20050712, end: 20050726
  2. GEMZAR [Suspect]
     Indication: PANCREATIC CARCINOMA STAGE IV
     Dosage: SEE IMAGE
     Route: 042
     Dates: start: 20050809, end: 20051004
  3. GEMZAR [Suspect]
     Indication: PANCREATIC CARCINOMA STAGE IV
     Dosage: SEE IMAGE
     Route: 042
     Dates: start: 20051011, end: 20051011
  4. GEMZAR [Suspect]
     Indication: PANCREATIC CARCINOMA STAGE IV
     Dosage: SEE IMAGE
     Route: 042
     Dates: start: 20051018, end: 20051018
  5. DEPAS (ETIZOLAM) [Concomitant]
  6. ZOLPIDEM TARTRATE [Concomitant]
  7. ALOSENN (ACHILLEA, RUBIA ROOT TINCTURE, SENNA FRUIT, SENNA LEAF, TARAX [Concomitant]
  8. MAGNESIUM OXIDE (MAGNESIUM OXIDE) [Concomitant]
  9. NIZATIDINE [Concomitant]
  10. POSTERISAN FORTE (ESCHERICHIA COLI, LYOPHILIZED, HYDROCORTISONE, LANOL [Concomitant]
  11. DECADRON #1 (DEXAMETHASONE SODIUM PHOSPHATE) [Concomitant]

REACTIONS (9)
  - ACUTE MYOCARDIAL INFARCTION [None]
  - BACK PAIN [None]
  - CARDIAC TAMPONADE [None]
  - CEREBRAL INFARCTION [None]
  - CORONARY ARTERY OCCLUSION [None]
  - DEPRESSED LEVEL OF CONSCIOUSNESS [None]
  - DIABETES MELLITUS [None]
  - HYPERGLYCAEMIA [None]
  - HYPOAESTHESIA [None]
